FAERS Safety Report 6716522-4 (Version None)
Quarter: 2010Q2

REPORT INFORMATION
  Report Type: 
  Country: None (occurrence: None)
  Receive Date: 20100507
  Receipt Date: 20100426
  Transmission Date: 20101027
  Serious: Yes (Hospitalization, Other)
  Sender: FDA-Public Use
  Company Number: US-ELI_LILLY_AND_COMPANY-US201004008168

PATIENT
  Age: 85 Year
  Sex: Male

DRUGS (1)
  1. EFFIENT [Suspect]
     Dosage: 10 MG, QOD
     Dates: start: 20100419, end: 20100420

REACTIONS (3)
  - CONFUSIONAL STATE [None]
  - HOSPITALISATION [None]
  - OFF LABEL USE [None]
